FAERS Safety Report 4526824-8 (Version None)
Quarter: 2004Q4

REPORT INFORMATION
  Report Type: 
  Country: None (occurrence: None)
  Receive Date: 20041213
  Receipt Date: 20041130
  Transmission Date: 20050328
  Serious: Yes (Life-Threatening, Hospitalization)
  Sender: FDA-Public Use
  Company Number: RS004851-CDN

PATIENT
  Age: 44 Year
  Sex: Female
  Weight: 44.5 kg

DRUGS (7)
  1. RABEPRAZOLE SODIUM [Suspect]
     Dosage: 20 MG, ORAL
     Route: 048
     Dates: start: 20041118, end: 20041120
  2. TEGRETOL [Concomitant]
  3. ANDRIOL (TESTOSTERONE UNDECAONATE) [Concomitant]
  4. OGEN [Concomitant]
  5. DIAZEPAM [Concomitant]
  6. IMOVANE (ZOPICLONE) [Concomitant]
  7. DEMEROL (PETHIDINE HYDROCHLOIRIDE) [Concomitant]

REACTIONS (4)
  - ANTICONVULSANT DRUG LEVEL INCREASED [None]
  - DRUG TOXICITY [None]
  - FALL [None]
  - LOSS OF CONSCIOUSNESS [None]
